FAERS Safety Report 4974247-X (Version None)
Quarter: 2006Q2

REPORT INFORMATION
  Report Type: 
  Country: None (occurrence: None)
  Receive Date: 20060417
  Receipt Date: 20060403
  Transmission Date: 20061013
  Serious: Yes (Hospitalization)
  Sender: FDA-Public Use
  Company Number: US-MERCK-0604USA00878

PATIENT
  Age: 65 Year
  Sex: Female
  Weight: 68 kg

DRUGS (11)
  1. VIOXX [Suspect]
     Indication: ARTHRITIS
     Route: 048
     Dates: start: 20010901, end: 20011001
  2. PRINIVIL [Concomitant]
     Route: 048
  3. GLIPIZIDE [Concomitant]
     Route: 048
  4. TAMOXIFEN CITRATE [Concomitant]
     Route: 048
  5. ECOTRIN [Concomitant]
     Route: 048
  6. AMITRIPTYLINE HYDROCHLORIDE [Concomitant]
     Route: 048
  7. EFFEXOR [Concomitant]
     Route: 048
  8. PROMETRIUM [Concomitant]
     Route: 048
  9. ACIPHEX [Concomitant]
     Route: 048
  10. ZITHROMAX [Concomitant]
     Route: 065
  11. ALLEGRA [Concomitant]
     Route: 065

REACTIONS (10)
  - ACUTE PRERENAL FAILURE [None]
  - CEREBROVASCULAR ACCIDENT [None]
  - COLECTOMY [None]
  - DIABETES MELLITUS [None]
  - DIVERTICULITIS [None]
  - DYSPNOEA [None]
  - HYPERTENSIVE CRISIS [None]
  - INTESTINAL STENOSIS [None]
  - MIDDLE EAR EFFUSION [None]
  - PARAESTHESIA [None]
